FAERS Safety Report 8171630-9 (Version None)
Quarter: 2012Q1

REPORT INFORMATION
  Report Type: 
  Country: None (occurrence: None)
  Receive Date: 20120104
  Receipt Date: 20111031
  Transmission Date: 20120608
  Serious: No
  Sender: FDA-Public Use
  Company Number: 2011HGS-002608

PATIENT
  Age: 36 Year
  Sex: Female
  Weight: 84.369 kg

DRUGS (10)
  1. NEURONTIN [Concomitant]
  2. AMBIEN [Concomitant]
  3. CITALOPRAM HYDROBROMIDE [Concomitant]
  4. OXYCODONE HCL [Concomitant]
  5. BENLYSTA [Suspect]
     Indication: SYSTEMIC LUPUS ERYTHEMATOSUS
     Dosage: 10 MG/KG, 1 IN 2 WK, INTRAVENOUS
     Route: 042
     Dates: start: 20110831
  6. NORVASC [Concomitant]
  7. CLONAZEPAM [Concomitant]
  8. PLAQUENIL [Concomitant]
  9. METHADONE HCL [Concomitant]
  10. VITAMINS (VITAMINS NOS) [Concomitant]

REACTIONS (4)
  - FATIGUE [None]
  - PRURITUS GENERALISED [None]
  - HYPOTENSION [None]
  - HEPATIC ENZYME INCREASED [None]
